FAERS Safety Report 6632012-1 (Version None)
Quarter: 2010Q1

REPORT INFORMATION
  Report Type: 
  Country: None (occurrence: None)
  Receive Date: 20100312
  Receipt Date: 20090604
  Transmission Date: 20100710
  Serious: No
  Sender: FDA-Public Use
  Company Number: US-BIOGENIDEC-2009BI017679

PATIENT
  Sex: Female

DRUGS (4)
  1. AVONEX [Suspect]
     Indication: MULTIPLE SCLEROSIS
     Route: 030
  2. WARFARIN SODIUM [Concomitant]
     Indication: DEEP VEIN THROMBOSIS
  3. WARFARIN SODIUM [Concomitant]
  4. GABAPENTIN [Concomitant]
     Indication: PAIN IN EXTREMITY

REACTIONS (10)
  - ANXIETY [None]
  - BLOOD URINE PRESENT [None]
  - DEPRESSION [None]
  - DYSPHAGIA [None]
  - HEAT RASH [None]
  - INSOMNIA [None]
  - INTERNATIONAL NORMALISED RATIO INCREASED [None]
  - URINARY TRACT INFECTION STAPHYLOCOCCAL [None]
  - URTICARIA [None]
  - VULVOVAGINAL MYCOTIC INFECTION [None]
